FAERS Safety Report 8543195-0 (Version None)
Quarter: 2012Q3

REPORT INFORMATION
  Report Type: 
  Country: None (occurrence: None)
  Receive Date: 20120716
  Receipt Date: 20120702
  Transmission Date: 20120928
  Serious: Yes (Death, Hospitalization, Other)
  Sender: FDA-Public Use
  Company Number: 2012AP002045

PATIENT
  Age: 88 Year
  Sex: Male

DRUGS (1)
  1. ALLOPURINOL [Suspect]
     Indication: GOUT

REACTIONS (3)
  - DELIRIUM [None]
  - BLOOD PRESSURE INADEQUATELY CONTROLLED [None]
  - STEVENS-JOHNSON SYNDROME [None]
